FAERS Safety Report 25218256 (Version 1)
Quarter: 2025Q2

REPORT INFORMATION
  Report Type: Spontaneous
  Country: US (occurrence: None)
  Receive Date: 20250421
  Receipt Date: 20250421
  Transmission Date: 20250717
  Serious: No
  Sender: BANNER
  Company Number: US-PTA-006012

PATIENT
  Sex: Female

DRUGS (1)
  1. NAPROXEN [Suspect]
     Active Substance: NAPROXEN
     Indication: Limb injury
     Route: 048

REACTIONS (2)
  - Product prescribing issue [Unknown]
  - Product use in unapproved indication [Unknown]
